FAERS Safety Report 8856210 (Version 1)
Quarter: 2012Q4

REPORT INFORMATION
  Report Type: 
  Country: US (occurrence: US)
  Receive Date: 20121023
  Receipt Date: 20121023
  Transmission Date: 20130627
  Serious: Yes (Other)
  Sender: FDA-Public Use
  Company Number: US-AMGEN-USASP2012058142

PATIENT
  Age: 31 Year
  Sex: Female

DRUGS (5)
  1. ENBREL [Suspect]
     Indication: PSORIATIC ARTHROPATHY
     Dosage: 50 mg, qwk
     Route: 058
     Dates: start: 20120605
  2. CLONAZEPAM [Concomitant]
     Dosage: UNK
  3. SINGULAR [Concomitant]
     Dosage: 10 mg, qd
  4. ZYRTEC [Concomitant]
     Dosage: 10 mg, UNK
  5. PAXIL [Concomitant]
     Dosage: 30 mg, UNK

REACTIONS (2)
  - Infection [Not Recovered/Not Resolved]
  - Psoriatic arthropathy [Unknown]
